FAERS Safety Report 12745744 (Version 1)
Quarter: 2016Q3

REPORT INFORMATION
  Report Type: Spontaneous
  Country: US (occurrence: US)
  Receive Date: 20160914
  Receipt Date: 20160914
  Transmission Date: 20161109
  Serious: Yes (Disabling)
  Sender: FDA-Public Use
  Company Number: None

PATIENT
  Age: 59 Year
  Sex: Female
  Weight: 117.9 kg

DRUGS (10)
  1. ACYCLOVIR HERITAGE PHARMACEUTICALS [Suspect]
     Active Substance: ACYCLOVIR
     Indication: ORAL HERPES
     Route: 048
     Dates: start: 20160912, end: 20160913
  2. BUPROPION. [Concomitant]
     Active Substance: BUPROPION
  3. CLOPIDOGREL [Concomitant]
     Active Substance: CLOPIDOGREL BISULFATE
  4. XANAX [Concomitant]
     Active Substance: ALPRAZOLAM
  5. MULTIVITAMINS COMPLETE [Concomitant]
  6. VITAMIN D [Concomitant]
     Active Substance: CHOLECALCIFEROL
  7. HYDROCHLOROTHIAZIDE. [Concomitant]
     Active Substance: HYDROCHLOROTHIAZIDE
  8. LISINOPRIL. [Concomitant]
     Active Substance: LISINOPRIL
  9. CALCIUM [Concomitant]
     Active Substance: CALCIUM
  10. ATORVASTATIN [Concomitant]
     Active Substance: ATORVASTATIN

REACTIONS (4)
  - Disease progression [None]
  - Pain [None]
  - Oral herpes [None]
  - Drug ineffective [None]

NARRATIVE: CASE EVENT DATE: 20160912
